FAERS Safety Report 7963853-6 (Version None)
Quarter: 2011Q4

REPORT INFORMATION
  Report Type: 
  Country: None (occurrence: None)
  Receive Date: 20111208
  Receipt Date: 20111130
  Transmission Date: 20120403
  Serious: Yes (Other)
  Sender: FDA-Public Use
  Company Number: JP-JNJFOC-20110909637

PATIENT
  Age: 38 Year
  Sex: Female

DRUGS (2)
  1. AKITENON [Concomitant]
     Route: 048
  2. RISPERDAL [Suspect]
     Indication: SCHIZOPHRENIA
     Dosage: MORE THAN 8 YEARS
     Route: 048
     Dates: start: 20040101

REACTIONS (1)
  - PULMONARY THROMBOSIS [None]
